FAERS Safety Report 12092475 (Version 2)
Quarter: 2016Q1

REPORT INFORMATION
  Report Type: Report from Study
  Country: US (occurrence: US)
  Receive Date: 20160219
  Receipt Date: 20160225
  Transmission Date: 20160526
  Serious: Yes (Other)
  Sender: FDA-Public Use
  Company Number: US-AMGEN-USASL2016019783

PATIENT
  Age: 62 Year
  Sex: Female

DRUGS (1)
  1. ENBREL [Suspect]
     Active Substance: ETANERCEPT
     Indication: RHEUMATOID ARTHRITIS
     Dosage: 50 MG, QWK
     Route: 065
     Dates: start: 20150227

REACTIONS (7)
  - Weight increased [Unknown]
  - Skin swelling [Unknown]
  - Biopsy bone marrow abnormal [Unknown]
  - Vision blurred [Unknown]
  - Sneezing [Unknown]
  - Nasal ulcer [Unknown]
  - Skin ulcer [Unknown]

NARRATIVE: CASE EVENT DATE: 201510
